FAERS Safety Report 6763289-X (Version None)
Quarter: 2010Q2

REPORT INFORMATION
  Report Type: 
  Country: None (occurrence: None)
  Receive Date: 20100608
  Receipt Date: 20100608
  Transmission Date: 20101027
  Serious: Yes (Hospitalization)
  Sender: FDA-Public Use
  Company Number: None

PATIENT
  Sex: Female
  Weight: 89 kg

DRUGS (2)
  1. CARBOPLATIN [Suspect]
     Dosage: 517 MG
  2. TAXOL [Suspect]
     Dosage: 350 MG

REACTIONS (9)
  - BODY TEMPERATURE INCREASED [None]
  - CULTURE URINE POSITIVE [None]
  - FEELING ABNORMAL [None]
  - HYPOTENSION [None]
  - NEUTROPHIL COUNT DECREASED [None]
  - PAIN [None]
  - POOR PERSONAL HYGIENE [None]
  - PSEUDOMONAS INFECTION [None]
  - WHITE BLOOD CELL COUNT DECREASED [None]
